FAERS Safety Report 9669680 (Version 1)
Quarter: 2013Q4

REPORT INFORMATION
  Report Type: Spontaneous
  Country: FR (occurrence: FR)
  Receive Date: 20131105
  Receipt Date: 20131105
  Transmission Date: 20140711
  Serious: Yes (Death, Hospitalization, Other)
  Sender: FDA-Public Use
  Company Number: FR-BRISTOL-MYERS SQUIBB COMPANY-19693142

PATIENT
  Age: 84 Year
  Sex: Female

DRUGS (14)
  1. ORENCIA [Suspect]
     Indication: RHEUMATOID ARTHRITIS
     Dosage: 08JUL13 TO 22AUG13
     Route: 042
     Dates: start: 20130708
  2. METOJECT [Suspect]
     Indication: RHEUMATOID ARTHRITIS
     Dosage: 1DF: 10 MG/ML,18MAR13 TO 30SEP13
     Route: 030
     Dates: start: 20130318
  3. COVERSYL [Suspect]
     Dates: start: 20130812
  4. FOLIC ACID [Concomitant]
  5. CORTANCYL [Concomitant]
     Dates: start: 201104
  6. COUMADINE [Concomitant]
     Dosage: RECHALLENGED IN JUN13
  7. INEXIUM [Concomitant]
     Dates: start: 201305
  8. CACIT D3 [Concomitant]
     Dates: start: 2011
  9. NEBIVOLOL [Concomitant]
  10. EPINITRIL [Concomitant]
  11. LASILIX [Concomitant]
  12. FORLAX [Concomitant]
  13. SODIUM HYALURONATE [Concomitant]
     Dosage: SODIUM HYALURONATE EYE DROPS
  14. VITAMIN A [Concomitant]
     Dosage: VITAMIN A EYE DROPS

REACTIONS (5)
  - Death [Fatal]
  - Herpes virus infection [Recovering/Resolving]
  - Pancytopenia [Unknown]
  - Shock [Unknown]
  - Renal failure [Unknown]
